FAERS Safety Report 4680836-2 (Version None)
Quarter: 2005Q2

REPORT INFORMATION
  Report Type: 
  Country: None (occurrence: None)
  Receive Date: 20050603
  Receipt Date: 20041028
  Transmission Date: 20051028
  Serious: Yes (Death, Hospitalization)
  Sender: FDA-Public Use
  Company Number: US-ABBOTT-04P-163-0278977-00

PATIENT
  Sex: Female

DRUGS (1)
  1. HUMIRA [Suspect]
     Indication: RHEUMATOID ARTHRITIS
     Route: 058
     Dates: start: 20030408, end: 20040728

REACTIONS (5)
  - FALL [None]
  - HIP FRACTURE [None]
  - METASTASES TO BONE [None]
  - METASTASES TO LIVER [None]
  - NON-SMALL CELL LUNG CANCER METASTATIC [None]
